FAERS Safety Report 20822166 (Version 3)
Quarter: 2025Q3

REPORT INFORMATION
  Report Type: Spontaneous
  Country: US (occurrence: US)
  Receive Date: 20220512
  Receipt Date: 20250806
  Transmission Date: 20251020
  Serious: Yes (Other)
  Sender: PFIZER
  Company Number: US-PFIZER INC-202200453321

PATIENT
  Age: 61 Year
  Sex: Female

DRUGS (1)
  1. XELJANZ XR [Suspect]
     Active Substance: TOFACITINIB CITRATE

REACTIONS (8)
  - Deafness [Unknown]
  - Blindness [Unknown]
  - COVID-19 [Unknown]
  - Illness [Unknown]
  - Glucose tolerance impaired [Unknown]
  - Skin disorder [Unknown]
  - Arthropathy [Unknown]
  - Skin haemorrhage [Unknown]
